FAERS Safety Report 7462569-2 (Version None)
Quarter: 2011Q2

REPORT INFORMATION
  Report Type: 
  Country: None (occurrence: None)
  Receive Date: 20110506
  Receipt Date: 20110502
  Transmission Date: 20111010
  Serious: Yes (Hospitalization)
  Sender: FDA-Public Use
  Company Number: FR-SANOFI-AVENTIS-2011SA026967

PATIENT
  Age: 63 Year
  Sex: Male

DRUGS (9)
  1. CANDESARTAN CILEXETIL [Interacting]
     Indication: NEPHROPATHY
     Route: 048
     Dates: start: 20060101, end: 20100716
  2. ATORVASTATIN [Concomitant]
     Dates: start: 20060101
  3. AVANDAMET [Concomitant]
     Dates: end: 20100701
  4. ALLOPURINOL [Concomitant]
     Dates: start: 20060101, end: 20100701
  5. RAMIPRIL [Interacting]
     Indication: NEPHROPATHY
     Route: 048
     Dates: start: 20060101, end: 20100716
  6. RAMIPRIL [Interacting]
     Route: 065
     Dates: start: 20100729
  7. PLAVIX [Concomitant]
  8. INDAPAMIDE [Suspect]
     Route: 048
     Dates: start: 20060101, end: 20100716
  9. GLIMEPIRIDE [Concomitant]
     Dates: start: 20060101, end: 20100701

REACTIONS (7)
  - ASTHENIA [None]
  - HYPONATRAEMIA [None]
  - FALL [None]
  - SKIN INJURY [None]
  - DRUG INTERACTION [None]
  - HYPOKALAEMIA [None]
  - RENAL FAILURE ACUTE [None]
